FAERS Safety Report 8053853-2 (Version None)
Quarter: 2012Q1

REPORT INFORMATION
  Report Type: 
  Country: None (occurrence: None)
  Receive Date: 20120118
  Receipt Date: 20120116
  Transmission Date: 20120608
  Serious: Yes (Other)
  Sender: FDA-Public Use
  Company Number: BR-BAYER-2011-119758

PATIENT
  Sex: Female

DRUGS (5)
  1. DESOGESTREL AND ETHINYL ESTRADIOL [Concomitant]
     Indication: CONTRACEPTION
     Dosage: 1 DF, QD
     Dates: start: 20060101
  2. VENLAFAXINE [Concomitant]
     Indication: DEPRESSION
     Dosage: 1 DF, QD
     Dates: start: 20100101
  3. INTERFERON BETA-1B [Suspect]
     Indication: MULTIPLE SCLEROSIS
     Dosage: 8 MIU, QOD
     Route: 058
     Dates: start: 20100401, end: 20110401
  4. INTERFERON BETA-1B [Suspect]
     Dosage: 8 MIU, QOD
     Route: 058
     Dates: start: 20030101, end: 20050101
  5. RETEMIC [Concomitant]
     Indication: URINARY INCONTINENCE
     Dosage: 1 DF, QD
     Dates: start: 20070101

REACTIONS (2)
  - PLATELET COUNT DECREASED [None]
  - ANAEMIA [None]
